FAERS Safety Report 4891451-X (Version None)
Quarter: 2005Q4

REPORT INFORMATION
  Report Type: 
  Country: None (occurrence: None)
  Receive Date: 20051220
  Receipt Date: 20050209
  Transmission Date: 20060501
  Serious: Yes (Other)
  Sender: FDA-Public Use
  Company Number: 200510157BWH

PATIENT
  Sex: Female

DRUGS (1)
  1. TRASYLOL [Suspect]
     Indication: AORTIC VALVE REPLACEMENT
     Dates: start: 20040801

REACTIONS (1)
  - ANAPHYLACTIC REACTION [None]
